FAERS Safety Report 25378171 (Version 1)
Quarter: 2025Q2

REPORT INFORMATION
  Report Type: Spontaneous
  Country: SI (occurrence: SI)
  Receive Date: 20250530
  Receipt Date: 20250530
  Transmission Date: 20250716
  Serious: Yes (Life-Threatening, Hospitalization)
  Sender: BOEHRINGER INGELHEIM
  Company Number: None

PATIENT
  Age: 90 Year
  Sex: Female

DRUGS (6)
  1. PRADAXA [Suspect]
     Active Substance: DABIGATRAN ETEXILATE MESYLATE
     Indication: Atrial fibrillation
     Dosage: 2X1
     Dates: end: 20250506
  2. CONCOR COR 2,5 MG [Concomitant]
     Indication: Product used for unknown indication
     Dosage: 1X1
  3. Forxiga 10 MG [Concomitant]
     Indication: Product used for unknown indication
     Dosage: 1X1
  4. Edemid 40 MG [Concomitant]
     Indication: Product used for unknown indication
     Dosage: 1/2 TABLET IN THE MORNING
  5. Edemid 40 MG [Concomitant]
     Dosage: LAST FEW DAYS 40 MG 2 TIMES A DAY.
  6. Prenewel 4 MG/1,25 MG [Concomitant]
     Indication: Product used for unknown indication
     Dosage: STRENGHT: 4 MG/1,25 MG?DOSE: 1X1

REACTIONS (3)
  - Haemorrhage [Recovering/Resolving]
  - International normalised ratio increased [Recovered/Resolved]
  - Haemoglobin decreased [Recovering/Resolving]

NARRATIVE: CASE EVENT DATE: 20250501
